FAERS Safety Report 9070289 (Version 1)
Quarter: 2013Q1

REPORT INFORMATION
  Report Type: Report from Study
  Country: US (occurrence: US)
  Receive Date: 20130129
  Receipt Date: 20130129
  Transmission Date: 20140127
  Serious: No
  Sender: FDA-Public Use
  Company Number: US-ABBOTT-12P-163-0927262-00

PATIENT
  Age: 58 Year
  Sex: Male

DRUGS (7)
  1. HUMIRA 40 MG/0.8 ML PEN [Suspect]
     Indication: CROHN^S DISEASE
     Dates: start: 201202
  2. QUESTRAN [Concomitant]
     Indication: CROHN^S DISEASE
     Dosage: 2 SCOOPS DAILY
     Route: 048
  3. QUESTRAN [Concomitant]
     Indication: DIARRHOEA
  4. MINOXIDIL [Concomitant]
     Indication: BLOOD PRESSURE
     Dosage: 2.5MG 2 TABS DAILY
     Route: 048
  5. TOPROL [Concomitant]
     Indication: HYPERTENSION
     Route: 048
  6. BENICAR [Concomitant]
     Indication: HYPERTENSION
     Dosage: 10MG DAILY
     Route: 048
  7. LANSOPRAZOLE [Concomitant]
     Indication: GASTROOESOPHAGEAL REFLUX DISEASE
     Dosage: 30MG DAILY
     Route: 048

REACTIONS (1)
  - Drug ineffective [Not Recovered/Not Resolved]
